FAERS Safety Report 9803003 (Version 1)
Quarter: 2014Q1

REPORT INFORMATION
  Report Type: Spontaneous
  Country: US (occurrence: None)
  Receive Date: 20140107
  Receipt Date: 20140107
  Transmission Date: 20141002
  Serious: Yes (Death)
  Sender: FDA-Public Use
  Company Number: None

PATIENT
  Age: 49 Year
  Sex: Female
  Weight: 82.3 kg

DRUGS (2)
  1. IRINOTECAN [Suspect]
     Indication: COLON CANCER
     Route: 042
     Dates: start: 20131204
  2. FOLFIRI [Suspect]
     Route: 042

REACTIONS (4)
  - Septic shock [None]
  - Pseudomonal sepsis [None]
  - Neutropenia [None]
  - Pneumonia [None]
